FAERS Safety Report 8573101-4 (Version None)
Quarter: 2012Q3

REPORT INFORMATION
  Report Type: 
  Country: None (occurrence: None)
  Receive Date: 20120806
  Receipt Date: 20120730
  Transmission Date: 20120928
  Serious: Yes (Hospitalization)
  Sender: FDA-Public Use
  Company Number: US-ACTELION-A-NJ2012-67872

PATIENT
  Age: 65 Year
  Sex: Male

DRUGS (3)
  1. TRACLEER [Suspect]
     Indication: PULMONARY ARTERIAL HYPERTENSION
     Dosage: UNK
     Route: 048
     Dates: start: 20090108
  2. IRON [Concomitant]
  3. TYVASO [Concomitant]

REACTIONS (7)
  - RENAL FAILURE ACUTE [None]
  - DECREASED APPETITE [None]
  - SCLERODERMA [None]
  - HAEMOGLOBIN DECREASED [None]
  - CONDITION AGGRAVATED [None]
  - ABDOMINAL DISTENSION [None]
  - ASCITES [None]
